FAERS Safety Report 8158894-2 (Version None)
Quarter: 2012Q1

REPORT INFORMATION
  Report Type: 
  Country: None (occurrence: None)
  Receive Date: 20120217
  Receipt Date: 20120203
  Transmission Date: 20120608
  Serious: Yes (Hospitalization)
  Sender: FDA-Public Use
  Company Number: 2012MA001728

PATIENT
  Age: 1 Year
  Sex: Female

DRUGS (1)
  1. IBUPROFEN [Suspect]
     Indication: HYPERPYREXIA
     Dosage: 30 MG/KG;PO
     Route: 048
     Dates: start: 20111217, end: 20111218

REACTIONS (2)
  - HAEMOLYSIS [None]
  - GASTRODUODENITIS [None]
